FAERS Safety Report 4785347-1 (Version None)
Quarter: 2005Q3

REPORT INFORMATION
  Report Type: 
  Country: None (occurrence: None)
  Receive Date: 20050929
  Receipt Date: 20050914
  Transmission Date: 20060218
  Serious: Yes (Hospitalization)
  Sender: FDA-Public Use
  Company Number: 230040M05FRA

PATIENT
  Age: 44 Year
  Sex: Female
  Weight: 78 kg

DRUGS (6)
  1. REBIF [Suspect]
     Indication: MULTIPLE SCLEROSIS
     Dosage: SEE IMAGE
  2. REBIF [Suspect]
     Indication: MULTIPLE SCLEROSIS
     Dosage: SEE IMAGE
  3. GABAPENTIN [Suspect]
     Dosage: 800 MG, 3 IN 1 DAYS
  4. PAROXETINE HCL [Suspect]
     Dosage: 20 MG, 1 IN 1 DAYS
  5. TRAMADOL HYDROCHLORIDE [Concomitant]
  6. CLONAZEPAM [Concomitant]

REACTIONS (3)
  - BLOOD THYROID STIMULATING HORMONE INCREASED [None]
  - HYPOGLYCAEMIA [None]
  - MALAISE [None]
